FAERS Safety Report 4279963-3 (Version None)
Quarter: 2004Q1

REPORT INFORMATION
  Report Type: 
  Country: None (occurrence: None)
  Receive Date: 20040121
  Receipt Date: 20040107
  Transmission Date: 20041129
  Serious: Yes (Other)
  Sender: FDA-Public Use
  Company Number: WAES0401USA00677

PATIENT
  Sex: 0

DRUGS (1)
  1. STROMECTOL [Suspect]
     Indication: ONCHOCERCIASIS
     Dosage: 150 MICROGM/KG/1X; O=PO
     Route: 048

REACTIONS (1)
  - DYSPNOEA [None]
